FAERS Safety Report 8545542-2 (Version None)
Quarter: 2012Q3

REPORT INFORMATION
  Report Type: 
  Country: None (occurrence: None)
  Receive Date: 20120727
  Receipt Date: 20120216
  Transmission Date: 20120928
  Serious: No
  Sender: FDA-Public Use
  Company Number: US-ASTRAZENECA-2011SE64504

PATIENT
  Age: 85 Year
  Sex: Male
  Weight: 63.5 kg

DRUGS (28)
  1. ALBUTEROL [Concomitant]
  2. FLORANEX [Concomitant]
  3. VITAMIN E [Concomitant]
  4. AMBIEN [Concomitant]
  5. ARICEPT [Concomitant]
  6. METFORMIN HYDROCHLORIDE [Concomitant]
  7. SEROQUEL [Suspect]
     Route: 048
     Dates: start: 20110201
  8. ATIVAN [Concomitant]
  9. SENNA DDS [Concomitant]
  10. DUONEB [Concomitant]
  11. BACITRACIN [Concomitant]
  12. TERAZOSIN HYDROCHLORIDE [Concomitant]
  13. LORAZEPAM [Concomitant]
  14. AVODART [Concomitant]
  15. MELATONIN [Concomitant]
  16. VESICARE [Concomitant]
  17. GLUCOTROL [Concomitant]
  18. HUMALOG [Concomitant]
  19. ZYPREXA [Concomitant]
  20. SEROQUEL [Suspect]
     Route: 048
     Dates: start: 20110222
  21. SEROQUEL [Suspect]
     Route: 048
     Dates: start: 20110830
  22. ASPIRIN [Concomitant]
  23. NORCO [Concomitant]
  24. LANTUS [Concomitant]
  25. MIRALAX [Concomitant]
  26. COLACE [Concomitant]
  27. HYDROCHLOROTHIAZIDE [Concomitant]
  28. VITAMIN D WITH CALCIUM [Concomitant]

REACTIONS (1)
  - DEMENTIA ALZHEIMER'S TYPE [None]
